FAERS Safety Report 8622227-5 (Version None)
Quarter: 2012Q3

REPORT INFORMATION
  Report Type: 
  Country: None (occurrence: None)
  Receive Date: 20120827
  Receipt Date: 20120816
  Transmission Date: 20120928
  Serious: No
  Sender: FDA-Public Use
  Company Number: US-009507513-1207USA000263

PATIENT

DRUGS (2)
  1. VICTRELIS [Suspect]
     Indication: HEPATITIS C
     Dosage: UNK
     Route: 048
     Dates: start: 20111101
  2. CYCLOBENZAPRINE HCL [Concomitant]

REACTIONS (2)
  - THERAPEUTIC PRODUCT INEFFECTIVE [None]
  - ANAEMIA [None]
